FAERS Safety Report 14764338 (Version 1)
Quarter: 2018Q2

REPORT INFORMATION
  Report Type: Spontaneous
  Country: DE (occurrence: DE)
  Receive Date: 20180416
  Receipt Date: 20180416
  Transmission Date: 20180711
  Serious: Yes (Other)
  Sender: FDA-Public Use
  Company Number: DE-TEVA-2018-DE-879825

PATIENT
  Age: 52 Year
  Sex: Female

DRUGS (1)
  1. LETROZOL ABZ 2,5 MG FILMTABLETTEN [Suspect]
     Active Substance: LETROZOLE
     Indication: ANTIOESTROGEN THERAPY
     Route: 048

REACTIONS (3)
  - Postmenopausal haemorrhage [Unknown]
  - Abdominal pain [Unknown]
  - Menorrhagia [None]
